FAERS Safety Report 26142260 (Version 1)
Quarter: 2025Q4

REPORT INFORMATION
  Report Type: Spontaneous
  Country: US (occurrence: US)
  Receive Date: 20251210
  Receipt Date: 20251210
  Transmission Date: 20260118
  Serious: No
  Sender: ABBVIE
  Company Number: US-ABBVIE-6577717

PATIENT
  Age: 85 Year
  Sex: Female

DRUGS (1)
  1. LUMIGAN [Suspect]
     Active Substance: BIMATOPROST
     Indication: Intraocular pressure test abnormal
     Dosage: 0.01%, FORM STRENGTH: 0.1 MILLIGRAM/MILLILITERS, FREQUENCY TEXT: 1 DROP EACH EYE IN THE EVENING
     Route: 047
     Dates: start: 20251129, end: 20251130

REACTIONS (3)
  - Ocular hyperaemia [Recovered/Resolved]
  - Swelling of eyelid [Recovered/Resolved]
  - Eyelid contusion [Recovered/Resolved]

NARRATIVE: CASE EVENT DATE: 20251130
